FAERS Safety Report 9386732 (Version 2)
Quarter: 2013Q3

REPORT INFORMATION
  Report Type: Spontaneous
  Country: US (occurrence: US)
  Receive Date: 20130708
  Receipt Date: 20130918
  Transmission Date: 20140515
  Serious: Yes (Other)
  Sender: FDA-Public Use
  Company Number: US-PFIZER INC-2013198325

PATIENT
  Age: 65 Year
  Sex: Female

DRUGS (13)
  1. CALCIUM 1000+D [Concomitant]
     Dosage: UNK
  2. CHROMIUM PICOLINATE KLB6 [Concomitant]
     Dosage: UNK
  3. LIDODERM [Concomitant]
     Dosage: UNK
  4. CITALOPRAM HYDROBROMIDE [Concomitant]
     Dosage: UNK
  5. MAGNESIUM GLUCONATE [Concomitant]
     Dosage: UNK
  6. ECHINACEA COMPOUND [Concomitant]
     Dosage: UNK
  7. OMEPRAZOLE [Concomitant]
     Dosage: UNK
  8. SUTENT [Suspect]
     Indication: RENAL CANCER
     Dosage: 50 MG, CYCLIC (4 WKS ON, 2 WEEKS OFF)
     Route: 048
     Dates: start: 20130619, end: 20130714
  9. SUTENT [Suspect]
     Indication: METASTATIC RENAL CELL CARCINOMA
  10. ACIDOPHILUS HIGH-POTENCY [Concomitant]
     Dosage: UNK
  11. FISH OIL+D3 [Concomitant]
     Dosage: UNK
  12. B COMPLEX 100 TR [Concomitant]
     Dosage: UNK
  13. FLAX SEED OIL [Concomitant]
     Dosage: UNK

REACTIONS (5)
  - Hepatotoxicity [Recovered/Resolved]
  - Dizziness [Unknown]
  - Dysgeusia [Unknown]
  - Glossodynia [Unknown]
  - Asthenia [Unknown]
